FAERS Safety Report 6757880-4 (Version None)
Quarter: 2010Q2

REPORT INFORMATION
  Report Type: 
  Country: None (occurrence: None)
  Receive Date: 20100604
  Receipt Date: 20100604
  Transmission Date: 20101027
  Serious: Yes (Hospitalization)
  Sender: FDA-Public Use
  Company Number: None

PATIENT
  Age: 92 Year
  Sex: Female
  Weight: 49.8957 kg

DRUGS (8)
  1. VESICARE [Suspect]
     Indication: HYPERTONIC BLADDER
     Dosage: 5 MGM QD PO
     Route: 048
  2. VESICARE [Suspect]
     Indication: PELVIC PROLAPSE
     Dosage: 5 MGM QD PO
     Route: 048
  3. LISINOPRIL [Concomitant]
  4. ASPIRIN [Concomitant]
  5. LOVAZA [Concomitant]
  6. VIT D [Concomitant]
  7. DULCOLAX [Concomitant]
  8. SENNA [Concomitant]

REACTIONS (4)
  - ATRIOVENTRICULAR BLOCK SECOND DEGREE [None]
  - CARDIAC PACEMAKER INSERTION [None]
  - SINUS BRADYCARDIA [None]
  - SYNCOPE [None]
